FAERS Safety Report 8451638-6 (Version None)
Quarter: 2012Q2

REPORT INFORMATION
  Report Type: 
  Country: None (occurrence: None)
  Receive Date: 20120620
  Receipt Date: 20120310
  Transmission Date: 20120825
  Serious: No
  Sender: FDA-Public Use
  Company Number: US-VERTEX PHARMACEUTICALS INC.-AE-2012-003485

PATIENT
  Sex: Female
  Weight: 51.756 kg

DRUGS (8)
  1. TAGAMET [Concomitant]
     Indication: DYSPEPSIA
  2. ESTROGEN REPLACEMENT [Concomitant]
     Indication: HORMONE REPLACEMENT THERAPY
  3. INCIVEK [Suspect]
     Indication: HEPATITIS C
     Route: 048
     Dates: start: 20120309
  4. PROGESTERONE [Concomitant]
     Indication: HORMONE REPLACEMENT THERAPY
  5. WELLBUTRIN [Concomitant]
     Indication: DEPRESSION
     Dates: start: 20120225
  6. PEGINTERFERON ALFA-2A [Concomitant]
     Indication: HEPATITIS C
     Route: 058
     Dates: start: 20120309
  7. CLARITIN [Concomitant]
     Indication: HYPERSENSITIVITY
  8. RIBAVIRIN [Concomitant]
     Indication: HEPATITIS C
     Route: 048
     Dates: start: 20120309

REACTIONS (1)
  - CHEST PAIN [None]
